FAERS Safety Report 9898399 (Version 1)
Quarter: 2014Q1

REPORT INFORMATION
  Report Type: Spontaneous
  Country: US (occurrence: US)
  Receive Date: 20140214
  Receipt Date: 20140214
  Transmission Date: 20141002
  Serious: Yes (Other)
  Sender: FDA-Public Use
  Company Number: US-ELI_LILLY_AND_COMPANY-US201402001413

PATIENT
  Sex: Female

DRUGS (18)
  1. CECLOR [Suspect]
     Indication: PRODUCT USED FOR UNKNOWN INDICATION
     Dosage: UNK, UNKNOWN
     Route: 065
  2. VANCOMYCIN HYDROCHLORIDE [Suspect]
     Indication: PRODUCT USED FOR UNKNOWN INDICATION
     Dosage: UNK, UNKNOWN
     Route: 065
  3. LYRICA [Concomitant]
     Indication: FIBROMYALGIA
     Dosage: 225 MG, BID
  4. ASMANEX [Concomitant]
     Indication: ASTHMA
     Dosage: 2 DF, QD
     Route: 055
  5. ATIVAN [Concomitant]
     Indication: NERVOUSNESS
     Dosage: 1 MG, QOD
  6. CITRATE [Concomitant]
     Indication: BONE DISORDER
     Dosage: 600 MG, BID
  7. COREG [Concomitant]
     Indication: CARDIAC DISORDER
     Dosage: 6.25 MG, BID
  8. COUMADIN [Concomitant]
     Indication: BLOOD DISORDER
     Dosage: 2.5 DF, EACH EVENING
  9. LOSARTAN [Concomitant]
     Indication: BLOOD PRESSURE
     Dosage: 50 MG, QD
  10. LASIX                              /00032601/ [Concomitant]
     Indication: BLOOD PRESSURE
     Dosage: 20 MG, QD
  11. NITRO                              /00003201/ [Concomitant]
     Indication: PRODUCT USED FOR UNKNOWN INDICATION
     Dosage: UNK, PRN
  12. OMEPRAZOLE [Concomitant]
     Indication: ABDOMINAL DISCOMFORT
     Dosage: 20 MG, BID
  13. DITROPAN [Concomitant]
     Indication: BLADDER DISORDER
     Dosage: 5 MG, QD
  14. POTASSIUM [Concomitant]
     Indication: PRODUCT USED FOR UNKNOWN INDICATION
     Dosage: 20 MG, QD
  15. TRAZODONE [Concomitant]
     Indication: SLEEP DISORDER
     Dosage: 50 MG, EACH EVENING
  16. VITAMIN C                          /00008001/ [Concomitant]
     Indication: BONE DISORDER
     Dosage: 250 MG, BID
  17. VITAMIN D                          /00107901/ [Concomitant]
     Indication: BONE DISORDER
     Dosage: 1000 IU, BID
  18. VYTORIN [Concomitant]
     Indication: PRODUCT USED FOR UNKNOWN INDICATION
     Dosage: 1 DF, QD

REACTIONS (4)
  - Gastric haemorrhage [Unknown]
  - Hyperhidrosis [Unknown]
  - Asthenia [Unknown]
  - Tremor [Unknown]
